FAERS Safety Report 7758535-X (Version None)
Quarter: 2011Q3

REPORT INFORMATION
  Report Type: 
  Country: None (occurrence: None)
  Receive Date: 20110825
  Receipt Date: 20110725
  Transmission Date: 20111222
  Serious: Yes (Other)
  Sender: FDA-Public Use
  Company Number: 330024

PATIENT
  Age: 51 Year
  Sex: Female
  Weight: 92.5 kg

DRUGS (14)
  1. SINGULAIR [Concomitant]
  2. ASPIRIN [Concomitant]
  3. LOVAZA (OMEGA-3 MARNIE TRIGLYCERIDES) [Concomitant]
  4. GLYBURIDE (GLIBENCLAMDIE) [Concomitant]
  5. TRILIPIX [Concomitant]
  6. VICTOZA [Suspect]
     Indication: TYPE 2 DIABETES MELLITUS
     Dosage: 1.2 MG, QD, SUBCUTANEOUS ; 1.8 MG, QD, SUBCUTANEOUS
     Route: 058
     Dates: end: 20110610
  7. VICTOZA [Suspect]
     Indication: TYPE 2 DIABETES MELLITUS
     Dosage: 1.2 MG, QD, SUBCUTANEOUS ; 1.8 MG, QD, SUBCUTANEOUS
     Route: 058
     Dates: start: 20100920
  8. GLIPIZIDE [Concomitant]
  9. COZAAR [Concomitant]
  10. LIPITOR [Concomitant]
  11. CLONAZEPAM [Concomitant]
  12. XOPENEX [Concomitant]
  13. ERGOCALCIFEROL [Concomitant]
  14. LOSARTAN POTASSIUM [Concomitant]

REACTIONS (3)
  - FAECES DISCOLOURED [None]
  - PANCREATITIS ACUTE [None]
  - CONSTIPATION [None]
